FAERS Safety Report 10922352 (Version 1)
Quarter: 2015Q1

REPORT INFORMATION
  Report Type: Spontaneous
  Country: US (occurrence: US)
  Receive Date: 20150317
  Receipt Date: 20150317
  Transmission Date: 20150721
  Serious: Yes (Hospitalization)
  Sender: FDA-Public Use
  Company Number: US-BAYER-2015-035287

PATIENT
  Age: 59 Year
  Sex: Female
  Weight: 59 kg

DRUGS (2)
  1. INSULIN [Concomitant]
     Active Substance: INSULIN NOS
  2. ALEVE PM [Suspect]
     Active Substance: DIPHENHYDRAMINE HYDROCHLORIDE\NAPROXEN SODIUM
     Indication: INTENTIONAL SELF-INJURY
     Dosage: 12 DF, UNK
     Route: 048
     Dates: start: 20150305

REACTIONS (4)
  - Self injurious behaviour [None]
  - Intentional overdose [None]
  - Hypertension [None]
  - Somnolence [None]

NARRATIVE: CASE EVENT DATE: 20150305
